FAERS Safety Report 6564362-1 (Version None)
Quarter: 2010Q1

REPORT INFORMATION
  Report Type: 
  Country: None (occurrence: None)
  Receive Date: 20100201
  Receipt Date: 20100127
  Transmission Date: 20100710
  Serious: Yes (Life-Threatening, Hospitalization)
  Sender: FDA-Public Use
  Company Number: DE-JNJFOC-20100110253

PATIENT
  Age: 25 Year
  Sex: Male
  Weight: 80 kg

DRUGS (3)
  1. HALOPERIDOL [Suspect]
     Indication: PSYCHOTIC DISORDER
     Route: 048
     Dates: start: 20091119, end: 20091203
  2. RISPERIDON [Suspect]
     Indication: PSYCHOTIC DISORDER
     Route: 048
     Dates: start: 20091119, end: 20091203
  3. LEVOMEPROMAZIN [Suspect]
     Indication: PSYCHOTIC DISORDER
     Route: 048
     Dates: start: 20091119, end: 20091203

REACTIONS (6)
  - DYSPHAGIA [None]
  - HYPERHIDROSIS [None]
  - NEUROLEPTIC MALIGNANT SYNDROME [None]
  - PYREXIA [None]
  - RESPIRATORY FAILURE [None]
  - STUPOR [None]
